FAERS Safety Report 14425533 (Version 1)
Quarter: 2018Q1

REPORT INFORMATION
  Report Type: Spontaneous
  Country: US (occurrence: US)
  Receive Date: 20180123
  Receipt Date: 20180123
  Transmission Date: 20180509
  Serious: Yes (Hospitalization, Other)
  Sender: FDA-Public Use
  Company Number: US-ASTRAZENECA-2005BM00073

PATIENT
  Age: 72 Year
  Sex: Female
  Weight: 79.5 kg

DRUGS (2)
  1. BYETTA [Suspect]
     Active Substance: EXENATIDE
     Indication: OVERWEIGHT
     Dosage: UNKNOWN TWO TIMES A DAY
     Route: 058
     Dates: start: 20050913, end: 20050915
  2. BYETTA [Suspect]
     Active Substance: EXENATIDE
     Indication: WEIGHT DECREASED
     Dosage: UNKNOWN TWO TIMES A DAY
     Route: 058
     Dates: start: 20050913, end: 20050915

REACTIONS (6)
  - Confusional state [Recovering/Resolving]
  - Hypoglycaemia [Unknown]
  - Loss of consciousness [Recovering/Resolving]
  - Asthenia [Recovering/Resolving]
  - Fall [Recovering/Resolving]
  - Diabetes mellitus inadequate control [Unknown]

NARRATIVE: CASE EVENT DATE: 20050915
